FAERS Safety Report 8089250-3 (Version None)
Quarter: 2012Q1

REPORT INFORMATION
  Report Type: 
  Country: None (occurrence: None)
  Receive Date: 20120128
  Receipt Date: 20110707
  Transmission Date: 20120608
  Serious: No
  Sender: FDA-Public Use
  Company Number: US-ABBOTT-11P-163-0837663-00

PATIENT
  Sex: Male
  Weight: 77.18 kg

DRUGS (5)
  1. HUMIRA [Suspect]
     Indication: RHEUMATOID ARTHRITIS
     Route: 058
     Dates: start: 20080601, end: 20080901
  2. HYDRALAZINE HCL [Concomitant]
     Indication: HYPERTENSION
  3. CLONIDINE [Concomitant]
     Indication: HYPERTENSION
     Dosage: PATCH
     Route: 062
  4. ASPIRIN [Concomitant]
     Indication: DRUG THERAPY
  5. HYDROCHLOROTHIAZIDE [Concomitant]
     Indication: HYPERTENSION

REACTIONS (1)
  - LOSS OF CONSCIOUSNESS [None]
